FAERS Safety Report 5399406-6 (Version None)
Quarter: 2007Q3

REPORT INFORMATION
  Report Type: 
  Country: None (occurrence: None)
  Receive Date: 20070727
  Receipt Date: 20070724
  Transmission Date: 20080115
  Serious: Yes (Hospitalization)
  Sender: FDA-Public Use
  Company Number: GB-AVENTIS-200710734GDDC

PATIENT
  Age: 42 Year
  Sex: Male

DRUGS (13)
  1. LANTUS [Suspect]
     Route: 058
     Dates: start: 20061001
  2. LYRICA [Concomitant]
     Route: 048
  3. SINGULAIR [Concomitant]
     Route: 048
  4. CLOPIDOGREL [Concomitant]
     Route: 048
  5. DOSULEPIN [Concomitant]
     Route: 048
  6. METFORMIN HCL [Concomitant]
     Route: 048
  7. ISOSORBIDE MONONITRATE [Concomitant]
     Route: 048
  8. NOVORAPID [Concomitant]
     Route: 058
  9. DILTIAZEM [Concomitant]
  10. PROCHLORPERAZINE [Concomitant]
  11. NICORANDIL [Concomitant]
  12. BECLOMETHASONE DIPROPIONATE [Concomitant]
     Dosage: DOSE QUANTITY: 2
     Route: 055
  13. VENTOLINE                          /00139501/ [Concomitant]
     Dosage: DOSE QUANTITY: 2
     Route: 055

REACTIONS (3)
  - ASTHMA [None]
  - BLOOD GLUCOSE INCREASED [None]
  - WEIGHT INCREASED [None]
